FAERS Safety Report 22146063 (Version 1)
Quarter: 2023Q1

REPORT INFORMATION
  Report Type: Spontaneous
  Country: US (occurrence: None)
  Receive Date: 20230327
  Receipt Date: 20230327
  Transmission Date: 20230417
  Serious: Yes (Other)
  Sender: FDA-Public Use
  Company Number: None

PATIENT
  Age: 52 Year
  Sex: Female
  Weight: 51.75 kg

DRUGS (1)
  1. DM MAX MAXIUM STRENGTH [Suspect]
     Active Substance: DEXTROMETHORPHAN HYDROBROMIDE\GUAIFENESIN
     Indication: Nasopharyngitis
     Dosage: OTHER QUANTITY : 1 OUNCE(S);?FREQUENCY : EVERY 4 HOURS;?
     Route: 048

REACTIONS (4)
  - Burning sensation [None]
  - Erythema [None]
  - Paraesthesia oral [None]
  - Rash [None]

NARRATIVE: CASE EVENT DATE: 20220327
